FAERS Safety Report 10195784 (Version 3)
Quarter: 2014Q2

REPORT INFORMATION
  Report Type: Spontaneous
  Country: TR (occurrence: TR)
  Receive Date: 20140527
  Receipt Date: 20140630
  Transmission Date: 20141212
  Serious: Yes (Hospitalization, Other)
  Sender: FDA-Public Use
  Company Number: TR-AMGEN INC.-TURSP2012027207

PATIENT
  Age: 41 Year
  Sex: Male

DRUGS (1)
  1. ENBREL [Suspect]
     Indication: ANKYLOSING SPONDYLITIS
     Dosage: 50 MG, WEEKLY
     Route: 058
     Dates: start: 201104

REACTIONS (9)
  - Dyspnoea [Recovered/Resolved]
  - Muscle spasms [Recovered/Resolved]
  - Ankylosing spondylitis [Unknown]
  - Peripheral swelling [Recovered/Resolved]
  - Contusion [Not Recovered/Not Resolved]
  - Vascular injury [Unknown]
  - Feeling of despair [Not Recovered/Not Resolved]
  - Uveitis [Recovered/Resolved]
  - Pain [Not Recovered/Not Resolved]
